FAERS Safety Report 17802146 (Version 1)
Quarter: 2020Q2

REPORT INFORMATION
  Report Type: Spontaneous
  Country: US (occurrence: US)
  Receive Date: 20200519
  Receipt Date: 20200519
  Transmission Date: 20200714
  Serious: No
  Sender: FDA-Public Use
  Company Number: US-PFIZER INC-2020197573

PATIENT
  Age: 49 Year
  Sex: Male

DRUGS (1)
  1. NEURONTIN [Suspect]
     Active Substance: GABAPENTIN
     Dosage: UNK

REACTIONS (4)
  - Throat irritation [Unknown]
  - Swollen tongue [Unknown]
  - Drug hypersensitivity [Unknown]
  - Pruritus [Unknown]
